FAERS Safety Report 23119079 (Version 1)
Quarter: 2023Q4

REPORT INFORMATION
  Report Type: Spontaneous
  Country: BR (occurrence: BR)
  Receive Date: 20231028
  Receipt Date: 20231028
  Transmission Date: 20240109
  Serious: Yes (Hospitalization)
  Sender: FDA-Public Use
  Company Number: BR-drreddys-SPO/BRA/23/0180556

PATIENT
  Age: 65 Year

DRUGS (3)
  1. METOPROLOL [Suspect]
     Active Substance: METOPROLOL
     Indication: Heart rate
  2. AMIODARONE [Suspect]
     Active Substance: AMIODARONE
     Indication: Product used for unknown indication
  3. DESLANOSIDE [Concomitant]
     Active Substance: DESLANOSIDE
     Indication: Heart rate

REACTIONS (1)
  - Drug ineffective [Recovering/Resolving]
